FAERS Safety Report 4619755-6 (Version None)
Quarter: 2005Q1

REPORT INFORMATION
  Report Type: 
  Country: None (occurrence: None)
  Receive Date: 20050321
  Receipt Date: 20050321
  Transmission Date: 20050727
  Serious: Yes (Congenital Anomaly, Other)
  Sender: FDA-Public Use
  Company Number: None

PATIENT
  Age: 56 Year
  Sex: Male
  Weight: 92.9874 kg

DRUGS (4)
  1. ADVICOR [Suspect]
     Indication: BLOOD CHOLESTEROL INCREASED
     Dosage: MINIMUM DOSE OF EACH, 10MG
     Dates: start: 20040701, end: 20050301
  2. CRESTOR [Suspect]
     Indication: BLOOD CHOLESTEROL INCREASED
     Dosage: MINIMUM DOSE OF EACH, 10 MG
     Dates: start: 20040701, end: 20050301
  3. VYTORIN [Suspect]
     Indication: BLOOD CHOLESTEROL INCREASED
     Dosage: MINIMUM DOSE OF EACH, 10 MG
     Dates: start: 20040701, end: 20050301
  4. LIPITOR [Suspect]
     Indication: BLOOD CHOLESTEROL INCREASED
     Dosage: MINIMUM DOSE OF EACH, 10 MG
     Dates: start: 20040701, end: 20050301

REACTIONS (6)
  - AMNESIA [None]
  - BRONCHITIS [None]
  - INFECTION IN AN IMMUNOCOMPROMISED HOST [None]
  - MALAISE [None]
  - MUSCULAR WEAKNESS [None]
  - URINE ABNORMALITY [None]
